FAERS Safety Report 9727376 (Version 1)
Quarter: 2013Q4

REPORT INFORMATION
  Report Type: Spontaneous
  Country: CA (occurrence: None)
  Receive Date: 20131129
  Receipt Date: 20131129
  Transmission Date: 20140711
  Serious: Yes (Other)
  Sender: FDA-Public Use
  Company Number: 2013AP009968

PATIENT
  Age: 69 Year
  Sex: Male

DRUGS (2)
  1. AMIODARONE [Suspect]
     Indication: ATRIAL FIBRILLATION
  2. PREDNISONE (PREDNISONE) [Suspect]
     Indication: HYPERTHYROIDISM
     Dosage: 20 MG; QD

REACTIONS (4)
  - Hyperthyroidism [None]
  - Oedema peripheral [None]
  - Weight increased [None]
  - Atrial fibrillation [None]
